FAERS Safety Report 11222973 (Version 1)
Quarter: 2015Q2

REPORT INFORMATION
  Report Type: Report from Study
  Country: DE (occurrence: DE)
  Receive Date: 20150626
  Receipt Date: 20150626
  Transmission Date: 20150821
  Serious: Yes (Hospitalization)
  Sender: FDA-Public Use
  Company Number: DE-BAXALTA-2015BAX031186

PATIENT
  Age: 18 Year
  Sex: Male
  Weight: 76.6 kg

DRUGS (6)
  1. NOVOSEVEN [Concomitant]
     Active Substance: COAGULATION FACTOR VIIA RECOMBINANT HUMAN
     Indication: HAEMORRHAGE
     Dosage: AS NEEDED
     Route: 042
     Dates: start: 20141223
  2. ARCOXIA [Concomitant]
     Active Substance: ETORICOXIB
     Indication: ARTHRITIS
     Dosage: 90MILLIGRAMAS NEEDED
     Route: 048
     Dates: start: 20141223
  3. IBUPROFEN. [Concomitant]
     Active Substance: IBUPROFEN
     Indication: ARTHRITIS
     Dosage: 600MILLIGRAMAS NEEDED
     Route: 048
     Dates: start: 20141223
  4. ROCEPHIN [Concomitant]
     Active Substance: CEFTRIAXONE SODIUM
     Indication: INFLAMMATION
     Dosage: UNSPECIFIED DOSE
     Route: 042
     Dates: start: 20141224
  5. FACTOR VIII [Suspect]
     Active Substance: ANTIHEMOPHILIC FACTOR HUMAN
     Indication: HAEMOPHILIA A WITH ANTI FACTOR VIII
     Dosage: UNK
     Route: 042
  6. CEFUROXIME. [Concomitant]
     Active Substance: CEFUROXIME
     Indication: INFLAMMATION
     Dosage: UNSPECIFIED DOSE
     Route: 048
     Dates: start: 20141224

REACTIONS (2)
  - Intestinal infarction [Recovering/Resolving]
  - Gastrointestinal ulcer haemorrhage [Not Recovered/Not Resolved]

NARRATIVE: CASE EVENT DATE: 20150604
